FAERS Safety Report 9916291 (Version 1)
Quarter: 2014Q1

REPORT INFORMATION
  Report Type: Spontaneous
  Country: US (occurrence: US)
  Receive Date: 20140221
  Receipt Date: 20140221
  Transmission Date: 20141002
  Serious: Yes (Other)
  Sender: FDA-Public Use
  Company Number: US-GE HEALTHCARE MEDICAL DIAGNOSTICS-OMPQ-PR-1402S-0154

PATIENT
  Age: 71 Year
  Sex: Female

DRUGS (6)
  1. OMNIPAQUE [Suspect]
     Indication: ABDOMINAL PAIN
     Route: 042
     Dates: start: 20140207, end: 20140207
  2. OMNIPAQUE [Suspect]
     Indication: DIAGNOSTIC PROCEDURE
  3. SYNTHROID [Concomitant]
  4. PREVACID [Concomitant]
  5. B12 [Concomitant]
  6. METAMUCIL [Concomitant]

REACTIONS (2)
  - Laryngospasm [Recovered/Resolved]
  - Urticaria [Recovered/Resolved]
